FAERS Safety Report 6073903-2 (Version None)
Quarter: 2009Q1

REPORT INFORMATION
  Report Type: 
  Country: None (occurrence: None)
  Receive Date: 20090211
  Receipt Date: 20090203
  Transmission Date: 20090719
  Serious: Yes (Other)
  Sender: FDA-Public Use
  Company Number: US-MERCK-0902USA00534

PATIENT
  Age: 68 Year
  Sex: Female

DRUGS (8)
  1. HYDRODIURIL [Suspect]
     Route: 048
  2. METFORMIN [Suspect]
     Route: 065
  3. ASPIRIN [Concomitant]
     Route: 065
  4. PRILOSEC [Concomitant]
     Route: 065
  5. FUROSEMIDE [Concomitant]
     Route: 065
  6. VYTORIN [Concomitant]
     Route: 048
  7. NIFEDIPINE [Concomitant]
     Route: 065
  8. INSULIN [Concomitant]
     Route: 065

REACTIONS (3)
  - GASTROENTERITIS [None]
  - LACTIC ACIDOSIS [None]
  - RENAL FAILURE ACUTE [None]
